FAERS Safety Report 13429925 (Version 1)
Quarter: 2017Q2

REPORT INFORMATION
  Report Type: Report from Study
  Country: None (occurrence: BR)
  Receive Date: 20170412
  Receipt Date: 20170412
  Transmission Date: 20170830
  Serious: Yes (Other)
  Sender: FDA-Public Use
  Company Number: BR-ABBVIE-17P-020-1921755-00

PATIENT
  Age: 54 Year
  Sex: Female
  Weight: 52 kg

DRUGS (3)
  1. ADDERA [Concomitant]
     Active Substance: CHOLECALCIFEROL
     Indication: PRODUCT USED FOR UNKNOWN INDICATION
     Route: 048
  2. HUMIRA [Suspect]
     Active Substance: ADALIMUMAB
     Indication: ANKYLOSING SPONDYLITIS
     Route: 058
     Dates: start: 20160926, end: 20170330
  3. SYNTHROID [Concomitant]
     Active Substance: LEVOTHYROXINE SODIUM
     Indication: THYROID DISORDER
     Route: 048

REACTIONS (19)
  - Dyspepsia [Unknown]
  - Gastrooesophageal reflux disease [Unknown]
  - Gastric operation [Unknown]
  - Hypertension [Unknown]
  - Malaise [Unknown]
  - Blood pressure increased [Not Recovered/Not Resolved]
  - Toothache [Unknown]
  - Thrombocytopenia [Recovering/Resolving]
  - Pallor [Recovering/Resolving]
  - Abdominal pain upper [Unknown]
  - Anaemia [Unknown]
  - Skin discolouration [Recovered/Resolved]
  - Vitamin B12 deficiency [Unknown]
  - Yellow skin [Recovering/Resolving]
  - Platelet count decreased [Not Recovered/Not Resolved]
  - Gastric disorder [Not Recovered/Not Resolved]
  - Skin discolouration [Unknown]
  - Tooth infection [Recovering/Resolving]
  - Malaise [Unknown]

NARRATIVE: CASE EVENT DATE: 201612
